FAERS Safety Report 8452726-0 (Version None)
Quarter: 2012Q2

REPORT INFORMATION
  Report Type: 
  Country: None (occurrence: None)
  Receive Date: 20120620
  Receipt Date: 20120611
  Transmission Date: 20120825
  Serious: Yes (Other)
  Sender: FDA-Public Use
  Company Number: US-ASTRAZENECA-2012SE38835

PATIENT
  Age: 61 Year
  Sex: Male
  Weight: 81.6 kg

DRUGS (3)
  1. ASPIRIN [Concomitant]
  2. NEXIUM [Suspect]
     Indication: GASTROOESOPHAGEAL REFLUX DISEASE
     Route: 048
     Dates: start: 20010101
  3. XANAX [Concomitant]
     Indication: ANXIETY
     Dosage: AS NEEDED

REACTIONS (3)
  - CEREBROVASCULAR ACCIDENT [None]
  - MYOCARDIAL INFARCTION [None]
  - ARTHRITIS [None]
